FAERS Safety Report 6366385-4 (Version None)
Quarter: 2009Q3

REPORT INFORMATION
  Report Type: 
  Country: None (occurrence: None)
  Receive Date: 20090915
  Receipt Date: 20090903
  Transmission Date: 20100115
  Serious: Yes (Other)
  Sender: FDA-Public Use
  Company Number: 2009SP020418

PATIENT
  Age: 38 Year
  Sex: Female

DRUGS (9)
  1. REBETOL [Suspect]
     Indication: HEPATITIS C
     Dosage: 1000 MG;QD;, 600 MG;QD;
     Dates: start: 20060102, end: 20060316
  2. REBETOL [Suspect]
     Indication: HEPATITIS C
     Dosage: 1000 MG;QD;, 600 MG;QD;
     Dates: start: 20060316, end: 20060412
  3. REBETOL [Suspect]
     Indication: HEPATITIS C
     Dosage: 1000 MG;QD;, 600 MG;QD;
     Dates: start: 20060412
  4. PEGASYS [Suspect]
     Indication: HEPATITIS C
     Dosage: 80 MCG;QD;, 135 MCG;QW;
     Dates: start: 20060102, end: 20060316
  5. PEGASYS [Suspect]
     Indication: HEPATITIS C
     Dosage: 80 MCG;QD;, 135 MCG;QW;
     Dates: start: 20060317
  6. GLUCOSAMIN /00943601/ [Concomitant]
  7. IRON [Concomitant]
  8. CALCIUM +VIT D [Concomitant]
  9. PARACETAMOL [Concomitant]

REACTIONS (17)
  - ALOPECIA [None]
  - BONE MARROW DISORDER [None]
  - DEPRESSED MOOD [None]
  - FACE OEDEMA [None]
  - FATIGUE [None]
  - HAEMOGLOBIN DECREASED [None]
  - HYPERTHYROIDISM [None]
  - INFLUENZA LIKE ILLNESS [None]
  - MEMORY IMPAIRMENT [None]
  - METABOLIC DISORDER [None]
  - MOOD SWINGS [None]
  - MYALGIA [None]
  - MYXOEDEMA [None]
  - OEDEMA PERIPHERAL [None]
  - PALPITATIONS [None]
  - THYROIDITIS [None]
  - WEIGHT INCREASED [None]
